FAERS Safety Report 9358754 (Version 1)
Quarter: 2013Q2

REPORT INFORMATION
  Report Type: Spontaneous
  Country: GB (occurrence: GB)
  Receive Date: 20130620
  Receipt Date: 20130620
  Transmission Date: 20140414
  Serious: Yes (Hospitalization)
  Sender: FDA-Public Use
  Company Number: GB-MYLANLABS-2013S1012674

PATIENT
  Age: 73 Year
  Sex: Female

DRUGS (1)
  1. NABUMETONE [Suspect]
     Indication: RHEUMATOID ARTHRITIS
     Route: 048
     Dates: start: 20031107

REACTIONS (1)
  - Chronic obstructive pulmonary disease [Recovered/Resolved]
